FAERS Safety Report 8832417 (Version 2)
Quarter: 2012Q4

REPORT INFORMATION
  Report Type: 
  Country: US (occurrence: None)
  Receive Date: 20121005
  Receipt Date: 20121022
  Transmission Date: 20130627
  Serious: Yes (Hospitalization)
  Sender: FDA-Public Use
  Company Number: 2012ST000678

PATIENT
  Age: 48 Year
  Sex: Male

DRUGS (1)
  1. MATULANE CAPSULES [Suspect]
     Indication: HODGKIN^S DISEASE
     Route: 048
     Dates: start: 20120719

REACTIONS (1)
  - Deep vein thrombosis [None]
